FAERS Safety Report 24621994 (Version 2)
Quarter: 2025Q2

REPORT INFORMATION
  Report Type: Report from Study
  Country: US (occurrence: US)
  Receive Date: 20241114
  Receipt Date: 20250522
  Transmission Date: 20250717
  Serious: Yes (Other)
  Sender: GILEAD
  Company Number: US-GILEAD-2024-0693999

PATIENT
  Age: 66 Year
  Sex: Male

DRUGS (8)
  1. AXICABTAGENE CILOLEUCEL [Suspect]
     Active Substance: AXICABTAGENE CILOLEUCEL
     Indication: Non-Hodgkin^s lymphoma
     Route: 042
  2. RITUXIMAB [Concomitant]
     Active Substance: RITUXIMAB
  3. GEMCITABINE [Concomitant]
     Active Substance: GEMCITABINE
  4. DEXAMETHASONE [Concomitant]
     Active Substance: DEXAMETHASONE
  5. CISPLATIN [Concomitant]
     Active Substance: CISPLATIN
  6. OXALIPLATIN [Concomitant]
     Active Substance: OXALIPLATIN
  7. CYCLOPHOSPHAMIDE [Concomitant]
     Active Substance: CYCLOPHOSPHAMIDE
     Indication: Lymphodepletion
  8. FLUDARABINE [Concomitant]
     Active Substance: FLUDARABINE PHOSPHATE
     Indication: Lymphodepletion

REACTIONS (1)
  - Acute myeloid leukaemia [Unknown]
